FAERS Safety Report 8210723-4 (Version None)
Quarter: 2012Q1

REPORT INFORMATION
  Report Type: 
  Country: None (occurrence: None)
  Receive Date: 20120315
  Receipt Date: 20120306
  Transmission Date: 20120608
  Serious: Yes (Hospitalization)
  Sender: FDA-Public Use
  Company Number: CH-BIOGENIDEC-2012BI008240

PATIENT
  Age: 40 Year
  Sex: Male

DRUGS (1)
  1. AVONEX [Suspect]
     Indication: MULTIPLE SCLEROSIS
     Route: 030
     Dates: start: 20080606

REACTIONS (3)
  - RIB FRACTURE [None]
  - CLAVICLE FRACTURE [None]
  - SPORTS INJURY [None]
